FAERS Safety Report 6611440-4 (Version None)
Quarter: 2010Q1

REPORT INFORMATION
  Report Type: 
  Country: None (occurrence: None)
  Receive Date: 20100301
  Receipt Date: 20100301
  Transmission Date: 20100710
  Serious: Yes (Hospitalization)
  Sender: FDA-Public Use
  Company Number: None

PATIENT
  Age: 59 Year
  Sex: Male
  Weight: 94.55 kg

DRUGS (1)
  1. RANOLAZINE [Suspect]
     Dosage: 500 MG BID PO
     Route: 048
     Dates: start: 20100107, end: 20100115

REACTIONS (3)
  - NAUSEA [None]
  - SYNCOPE [None]
  - VOMITING [None]
